FAERS Safety Report 8167611-1 (Version None)
Quarter: 2012Q1

REPORT INFORMATION
  Report Type: 
  Country: None (occurrence: None)
  Receive Date: 20120227
  Receipt Date: 20120221
  Transmission Date: 20120608
  Serious: Yes (Hospitalization, Other)
  Sender: FDA-Public Use
  Company Number: US-PFIZER INC-2011197787

PATIENT
  Sex: Male

DRUGS (2)
  1. CHANTIX [Suspect]
     Indication: SMOKING CESSATION THERAPY
     Dosage: 2 MG, 1X/DAY
     Dates: start: 20090201
  2. CHANTIX [Suspect]
     Dosage: 2 MG, 1X/DAY
     Dates: start: 20100301

REACTIONS (6)
  - LEFT VENTRICULAR DYSFUNCTION [None]
  - PALPITATIONS [None]
  - CARDIAC DISORDER [None]
  - DIZZINESS [None]
  - HEART RATE IRREGULAR [None]
  - MIGRAINE [None]
